FAERS Safety Report 8841617 (Version 4)
Quarter: 2013Q3

REPORT INFORMATION
  Report Type: Report from Study
  Country: JP (occurrence: JP)
  Receive Date: 20121015
  Receipt Date: 20130912
  Transmission Date: 20140515
  Serious: Yes (Other)
  Sender: FDA-Public Use
  Company Number: JP-VERTEX PHARMACEUTICAL INC.-2012-022670

PATIENT
  Age: 62 Year
  Sex: Male

DRUGS (5)
  1. VX-950 (TELAPREVIR) [Suspect]
     Indication: CHRONIC HEPATITIS C
     Dosage: 1500 MG, QD
     Route: 048
     Dates: start: 20120703, end: 20120924
  2. RIBAVIRIN [Suspect]
     Indication: CHRONIC HEPATITIS C
     Dosage: 800 MG, QD
     Route: 048
     Dates: start: 20120703, end: 20121212
  3. RIBAVIRIN [Suspect]
     Dosage: 400 MG, QD
     Route: 048
     Dates: start: 20121213, end: 20121215
  4. PEGINTERFERON ALFA-2B [Suspect]
     Indication: CHRONIC HEPATITIS C
     Dosage: 1.6 ?G/KG, QW
     Route: 058
     Dates: start: 20120703, end: 20121212
  5. SELBEX [Concomitant]
     Dosage: 150 MG, QD
     Route: 048
     Dates: start: 20120703, end: 20121212

REACTIONS (1)
  - White blood cell count decreased [Not Recovered/Not Resolved]
